FAERS Safety Report 24579759 (Version 2)
Quarter: 2024Q4

REPORT INFORMATION
  Report Type: Report from Study
  Country: DE (occurrence: DE)
  Receive Date: 20241105
  Receipt Date: 20241126
  Transmission Date: 20250114
  Serious: Yes (Other)
  Sender: RANBAXY
  Company Number: DE-SUN PHARMACEUTICAL INDUSTRIES LTD-2024RR-475067

PATIENT
  Age: 59 Year
  Sex: Female
  Weight: 52 kg

DRUGS (3)
  1. SONIDEGIB [Suspect]
     Active Substance: SONIDEGIB
     Indication: Basal cell carcinoma
     Dosage: 200 MILLIGRAM, UNK
     Route: 048
     Dates: start: 20220117, end: 20240827
  2. ZOPICLONE [Concomitant]
     Active Substance: ZOPICLONE
     Indication: Pre-existing disease
     Dosage: DOSE AS REQUIRED, DAILY
     Route: 048
  3. METAMIZOLE [Concomitant]
     Active Substance: METAMIZOLE
     Indication: Pre-existing disease
     Dosage: DOSE AS REQUIRED, DAILY
     Route: 048

REACTIONS (2)
  - Basal cell carcinoma [Not Recovered/Not Resolved]
  - Basal cell carcinoma [Not Recovered/Not Resolved]

NARRATIVE: CASE EVENT DATE: 20240827
